FAERS Safety Report 19200553 (Version 2)
Quarter: 2021Q2

REPORT INFORMATION
  Report Type: Report from Study
  Country: ES (occurrence: ES)
  Receive Date: 20210430
  Receipt Date: 20210505
  Transmission Date: 20210717
  Serious: No
  Sender: FDA-Public Use
  Company Number: ES-SA-2019SA137170

PATIENT
  Age: 26 Year
  Sex: Male

DRUGS (2)
  1. ALEMTUZUMAB [Suspect]
     Active Substance: ALEMTUZUMAB
     Indication: RELAPSING MULTIPLE SCLEROSIS
     Dosage: 12 MG, QD
     Route: 041
     Dates: start: 20160328, end: 20160401
  2. ALEMTUZUMAB [Suspect]
     Active Substance: ALEMTUZUMAB
     Dosage: 12 MG, QD
     Route: 041
     Dates: start: 20170403, end: 20170405

REACTIONS (8)
  - Proteinuria [Recovered/Resolved]
  - Urinary tract infection [Recovered/Resolved]
  - Hypothyroidism [Not Recovered/Not Resolved]
  - Lipoma [Recovering/Resolving]
  - Neutropenia [Recovered/Resolved]
  - Primary hyperthyroidism [Recovered/Resolved]
  - Proteinuria [Recovered/Resolved]
  - Rash pruritic [Recovered/Resolved]

NARRATIVE: CASE EVENT DATE: 20170404
